FAERS Safety Report 17409324 (Version 1)
Quarter: 2020Q1

REPORT INFORMATION
  Report Type: Spontaneous
  Country: GB (occurrence: GB)
  Receive Date: 20200212
  Receipt Date: 20200212
  Transmission Date: 20200409
  Serious: Yes (Hospitalization, Other)
  Sender: FDA-Public Use
  Company Number: GB-PFIZER INC-2020055914

PATIENT
  Sex: Male

DRUGS (9)
  1. GABAPENTIN. [Concomitant]
     Active Substance: GABAPENTIN
     Dosage: 900 MG, 1X/DAY (300 MG, TID)
     Route: 048
  2. CLOZARIL [Suspect]
     Active Substance: CLOZAPINE
     Indication: SCHIZOPHRENIA
     Dosage: 450 MG, 1X/DAY, (450 MG, QD (PM))
     Route: 048
     Dates: start: 20080204, end: 20191210
  3. SERTRALINE HCL [Suspect]
     Active Substance: SERTRALINE HYDROCHLORIDE
     Dosage: 200 MG, 1X/DAY, (200 MG, QD)
     Route: 065
     Dates: end: 2019
  4. METHYLPHENIDATE. [Concomitant]
     Active Substance: METHYLPHENIDATE
     Indication: ATTENTION DEFICIT/HYPERACTIVITY DISORDER
     Dosage: 30 MG, UNK
     Route: 065
  5. HALOPERIDOL. [Concomitant]
     Active Substance: HALOPERIDOL
     Indication: ATTENTION DEFICIT/HYPERACTIVITY DISORDER
     Dosage: 10 MG, 1X/DAY (10 MG, QD (AM))
     Route: 065
  6. LISDEXAMFETAMINE [Concomitant]
     Active Substance: LISDEXAMFETAMINE
     Dosage: 70 MG, UNK
     Route: 048
     Dates: start: 201812
  7. CLOZARIL [Suspect]
     Active Substance: CLOZAPINE
     Dosage: UNK
     Route: 048
     Dates: end: 20191212
  8. CLOMIPRAMINE [Concomitant]
     Active Substance: CLOMIPRAMINE
     Indication: OBSESSIVE-COMPULSIVE DISORDER
     Dosage: 150 MG, 1X/DAY (150 MG, QDV (PM))
     Route: 065
  9. OMACOR [Concomitant]
     Active Substance: OMEGA-3-ACID ETHYL ESTERS
     Dosage: 4 DF, 1X/DAY, (2 DF, BID)
     Route: 048

REACTIONS (10)
  - Schizophrenia [Recovering/Resolving]
  - Eosinophil count increased [Recovered/Resolved]
  - Restless legs syndrome [Recovered/Resolved]
  - White blood cell count increased [Recovered/Resolved]
  - Agitation [Recovered/Resolved]
  - Neutrophil count increased [Recovered/Resolved]
  - Pain in extremity [Recovered/Resolved]
  - Hyperhidrosis [Recovered/Resolved]
  - Viral infection [Recovered/Resolved]
  - Monocyte count increased [Recovered/Resolved]

NARRATIVE: CASE EVENT DATE: 2011
